FAERS Safety Report 25405671 (Version 1)
Quarter: 2025Q2

REPORT INFORMATION
  Report Type: Spontaneous
  Country: US (occurrence: US)
  Receive Date: 20250606
  Receipt Date: 20250606
  Transmission Date: 20250716
  Serious: Yes (Life-Threatening, Hospitalization, Other)
  Sender: AUROBINDO
  Company Number: US-MLMSERVICE-20250516-PI510848-00034-1

PATIENT
  Age: 17 Year
  Sex: Male

DRUGS (10)
  1. AMIODARONE HYDROCHLORIDE [Suspect]
     Active Substance: AMIODARONE HYDROCHLORIDE
     Indication: Atrial flutter
     Dosage: 200 MILLIGRAM, ONCE A DAY
     Route: 048
  2. AMIODARONE HYDROCHLORIDE [Suspect]
     Active Substance: AMIODARONE HYDROCHLORIDE
     Indication: Ejection fraction
     Route: 065
  3. AMIODARONE HYDROCHLORIDE [Suspect]
     Active Substance: AMIODARONE HYDROCHLORIDE
     Dosage: 1 MILLIGRAM, Q MIN (CONTINUOUS AMIODARONE INFUSION)
     Route: 065
  4. AMIODARONE HYDROCHLORIDE [Suspect]
     Active Substance: AMIODARONE HYDROCHLORIDE
     Dosage: 0.5 MILLIGRAM, Q MIN (CONTINUOUS AMIODARONE INFUSION)
     Route: 065
  5. AMIODARONE HYDROCHLORIDE [Suspect]
     Active Substance: AMIODARONE HYDROCHLORIDE
     Route: 048
  6. AMIODARONE HYDROCHLORIDE [Suspect]
     Active Substance: AMIODARONE HYDROCHLORIDE
     Route: 048
  7. PROPRANOLOL [Concomitant]
     Active Substance: PROPRANOLOL HYDROCHLORIDE
     Indication: Cardiomyopathy
     Route: 065
  8. VERAPAMIL [Concomitant]
     Active Substance: VERAPAMIL HYDROCHLORIDE
     Indication: Cardiomyopathy
     Route: 065
  9. OMAVELOXOLONE [Concomitant]
     Active Substance: OMAVELOXOLONE
     Indication: Friedreich^s ataxia
     Route: 065
  10. ADENOSINE [Concomitant]
     Active Substance: ADENOSINE
     Indication: Atrial flutter
     Route: 065

REACTIONS (6)
  - Hyperthyroidism [Recovering/Resolving]
  - Cardiac failure acute [Recovering/Resolving]
  - Cardiogenic shock [Recovering/Resolving]
  - Cardiac arrest [Recovered/Resolved]
  - Tachyarrhythmia [Recovering/Resolving]
  - Condition aggravated [Recovering/Resolving]
